FAERS Safety Report 23918718 (Version 2)
Quarter: 2024Q4

REPORT INFORMATION
  Report Type: Spontaneous
  Country: IT (occurrence: IT)
  Receive Date: 20240530
  Receipt Date: 20241024
  Transmission Date: 20250115
  Serious: Yes (Hospitalization, Other)
  Sender: ROCHE
  Company Number: IT-ROCHE-3549706

PATIENT
  Age: 37 Year
  Sex: Female

DRUGS (2)
  1. VABYSMO [Suspect]
     Active Substance: FARICIMAB-SVOA
     Indication: Diabetic retinal oedema
     Dosage: IN LEFT EYE.?IN RIGHT EYE-08/APR/2024
     Route: 050
     Dates: start: 20240225
  2. VABYSMO [Concomitant]
     Active Substance: FARICIMAB-SVOA
     Dates: start: 20240325

REACTIONS (4)
  - Iridocyclitis [Recovered/Resolved]
  - Vitritis [Recovered/Resolved]
  - Anterior chamber cell [Recovered/Resolved]
  - Vitreal cells [Recovering/Resolving]

NARRATIVE: CASE EVENT DATE: 20240415
